FAERS Safety Report 5171150-X (Version None)
Quarter: 2006Q4

REPORT INFORMATION
  Report Type: 
  Country: None (occurrence: None)
  Receive Date: 20061213
  Receipt Date: 20061205
  Transmission Date: 20070319
  Serious: Yes (Life-Threatening)
  Sender: FDA-Public Use
  Company Number: ZA-BRISTOL-MYERS SQUIBB COMPANY-13601612

PATIENT
  Age: 40 Year
  Sex: Male

DRUGS (7)
  1. BLINDED: ABATACEPT [Suspect]
     Indication: RHEUMATOID ARTHRITIS
     Route: 042
     Dates: start: 20060327
  2. BLINDED: PLACEBO [Suspect]
     Indication: RHEUMATOID ARTHRITIS
     Route: 042
     Dates: start: 20060327
  3. DICLOFENAC SODIUM [Suspect]
     Route: 054
  4. METHOTREXATE [Concomitant]
     Dates: start: 20060523
  5. FOLIC ACID [Concomitant]
     Dates: start: 20060327
  6. MELOXICAM [Concomitant]
     Dates: start: 20060304
  7. ISOTRETINOIN [Concomitant]
     Dates: start: 20061010

REACTIONS (1)
  - ANAPHYLACTIC REACTION [None]
